APPROVED DRUG PRODUCT: JOENJA
Active Ingredient: LENIOLISIB PHOSPHATE
Strength: EQ 70MG BASE
Dosage Form/Route: TABLET;ORAL
Application: N217759 | Product #001
Applicant: PHARMING TECHNOLOGIES BV
Approved: Mar 24, 2023 | RLD: Yes | RS: Yes | Type: RX

PATENTS:
Patent 8653092 | Expires: Feb 19, 2032

EXCLUSIVITY:
Code: NCE | Date: Mar 24, 2028
Code: ODE-430 | Date: Mar 24, 2030